FAERS Safety Report 6968524-0 (Version None)
Quarter: 2010Q3

REPORT INFORMATION
  Report Type: 
  Country: None (occurrence: None)
  Receive Date: 20100907
  Receipt Date: 20100827
  Transmission Date: 20110219
  Serious: Yes (Hospitalization)
  Sender: FDA-Public Use
  Company Number: JP-PFIZER INC-2010108001

PATIENT
  Age: 47 Year
  Sex: Female

DRUGS (7)
  1. SOLANAX [Suspect]
     Dosage: 0.4 MG, 2X/DAY
     Route: 048
  2. SOLANAX [Suspect]
     Dosage: 0.4 MG, 1X/DAY
     Route: 048
     Dates: start: 20100809
  3. DEPROMEL [Suspect]
     Dosage: UNK
     Route: 048
  4. DEPAS [Suspect]
     Dosage: UNK
     Route: 048
  5. TETRAMIDE [Suspect]
     Dosage: UNK
     Route: 048
  6. BLOPRESS [Concomitant]
     Dosage: UNK
     Route: 048
  7. GASMOTIN [Concomitant]
     Dosage: UNK
     Route: 048

REACTIONS (1)
  - HEPATIC FUNCTION ABNORMAL [None]
